FAERS Safety Report 5711975-2 (Version None)
Quarter: 2008Q2

REPORT INFORMATION
  Report Type: 
  Country: None (occurrence: None)
  Receive Date: 20080416
  Receipt Date: 20080401
  Transmission Date: 20081010
  Serious: Yes (Other)
  Sender: FDA-Public Use
  Company Number: 08-000596

PATIENT
  Age: 57 Year
  Sex: Female

DRUGS (1)
  1. DURICEF(CEFADROXIL) TABLET, 1G [Suspect]
     Indication: BRONCHITIS
     Dosage: 1 G, SINGLE, ORAL
     Route: 048
     Dates: start: 20050101

REACTIONS (4)
  - ANAPHYLACTIC REACTION [None]
  - ANGIOEDEMA [None]
  - BLOOD PRESSURE DECREASED [None]
  - GENERALISED OEDEMA [None]
